FAERS Safety Report 9196857 (Version 4)
Quarter: 2013Q4

REPORT INFORMATION
  Report Type: Spontaneous
  Country: GB (occurrence: GB)
  Receive Date: 20130328
  Receipt Date: 20131017
  Transmission Date: 20140711
  Serious: Yes (Death)
  Sender: FDA-Public Use
  Company Number: PHFR2013GB001920

PATIENT
  Sex: Male
  Weight: 107 kg

DRUGS (6)
  1. CLOZARIL [Suspect]
     Indication: SCHIZOPHRENIA
     Dosage: 225 MG, UNK
     Route: 048
     Dates: start: 20090112
  2. LITHIUM CARBONATE [Concomitant]
     Dosage: 600 MG, UNK
     Route: 048
  3. DEPAKOTE [Concomitant]
     Dosage: 1250 MG, UNK
     Route: 048
  4. SIMVASTATIN [Concomitant]
     Dosage: 20 MG, UNK
     Route: 048
  5. OXYTETRACYCLINE [Concomitant]
     Dosage: 500 MG, UNK
     Route: 048
  6. PENICILLIN V [Concomitant]
     Dosage: 1 G, UNK
     Route: 048

REACTIONS (2)
  - Arrhythmia [Fatal]
  - Congestive cardiomyopathy [Fatal]
